FAERS Safety Report 17427095 (Version 1)
Quarter: 2020Q1

REPORT INFORMATION
  Report Type: Report from Study
  Country: US (occurrence: US)
  Receive Date: 20200218
  Receipt Date: 20200218
  Transmission Date: 20200409
  Serious: Yes (Other)
  Sender: FDA-Public Use
  Company Number: US-ROCHE-2545440

PATIENT
  Sex: Male

DRUGS (14)
  1. BREO ELLIPTA [Concomitant]
     Active Substance: FLUTICASONE FUROATE\VILANTEROL TRIFENATATE
     Dosage: 200 MCG 25 MCG/INH POWDER
     Route: 065
  2. VITAMIN B12 [Concomitant]
     Active Substance: CYANOCOBALAMIN
     Dosage: 2500 MCG
     Route: 065
  3. ESBRIET [Suspect]
     Active Substance: PIRFENIDONE
     Indication: IDIOPATHIC PULMONARY FIBROSIS
     Dosage: TAKE 1 TABLET BY MOUTH 3 TIMES A DAY
     Route: 048
  4. DONEPEZIL. [Concomitant]
     Active Substance: DONEPEZIL
     Route: 048
  5. MAG [PANTOPRAZOLE SODIUM SESQUIHYDRATE] [Concomitant]
     Route: 065
  6. MEMANTINE. [Concomitant]
     Active Substance: MEMANTINE
     Route: 048
  7. SPIRIVA [Concomitant]
     Active Substance: TIOTROPIUM BROMIDE MONOHYDRATE
     Dosage: 18 MCG
     Route: 065
  8. COMBIVENT RESPIMAT [Concomitant]
     Active Substance: ALBUTEROL SULFATE\IPRATROPIUM BROMIDE
     Dosage: 20 MOG 100 MOG
     Route: 065
  9. FLUTICASONE. [Concomitant]
     Active Substance: FLUTICASONE
     Dosage: NASAL SPRAY 50 MOG
     Route: 065
  10. OMEPRAZOLE. [Concomitant]
     Active Substance: OMEPRAZOLE
     Route: 048
  11. PRIMIDONE. [Concomitant]
     Active Substance: PRIMIDONE
     Route: 048
  12. VITAMIN D3 [Concomitant]
     Active Substance: CHOLECALCIFEROL
     Dosage: 2000 UNITS
     Route: 065
  13. ELIQUIS [Concomitant]
     Active Substance: APIXABAN
     Route: 048
  14. MONTELUKAST [Concomitant]
     Active Substance: MONTELUKAST SODIUM
     Route: 048

REACTIONS (2)
  - Bladder cancer [Unknown]
  - Skin cancer [Unknown]
